FAERS Safety Report 25347464 (Version 1)
Quarter: 2025Q2

REPORT INFORMATION
  Report Type: Spontaneous
  Country: RU (occurrence: RU)
  Receive Date: 20250522
  Receipt Date: 20250522
  Transmission Date: 20250717
  Serious: Yes (Hospitalization, Other)
  Sender: Haleon PLC
  Company Number: RU-SANDOZ-SDZ2024RU012770

PATIENT
  Sex: Male
  Weight: 80 kg

DRUGS (2)
  1. DICLOFENAC [Suspect]
     Active Substance: DICLOFENAC
     Indication: Product used for unknown indication
     Route: 050
     Dates: start: 20240121, end: 20240123
  2. TIZANIDINE [Suspect]
     Active Substance: TIZANIDINE
     Indication: Product used for unknown indication
     Route: 050
     Dates: start: 20240123, end: 20240124

REACTIONS (2)
  - Loss of consciousness [Recovering/Resolving]
  - Vomiting [Recovering/Resolving]

NARRATIVE: CASE EVENT DATE: 20240124
